FAERS Safety Report 9778104 (Version 1)
Quarter: 2013Q4

REPORT INFORMATION
  Report Type: Spontaneous
  Country: GB (occurrence: GB)
  Receive Date: 20131223
  Receipt Date: 20131223
  Transmission Date: 20140711
  Serious: Yes (Disabling)
  Sender: FDA-Public Use
  Company Number: GB-AMGEN-GBRSP2013089104

PATIENT
  Age: 68 Year
  Sex: Female

DRUGS (3)
  1. PROLIA [Suspect]
     Indication: OSTEOPOROSIS
     Dosage: 60 MG, UNK
     Route: 058
     Dates: start: 20131112, end: 20131206
  2. FULTIUM [Concomitant]
  3. PERINDOPRIL [Concomitant]

REACTIONS (3)
  - Lower respiratory tract infection [Recovering/Resolving]
  - White blood cell count increased [Unknown]
  - Malaise [Recovering/Resolving]
